FAERS Safety Report 9091896 (Version 1)
Quarter: 2013Q1

REPORT INFORMATION
  Report Type: Spontaneous
  Country: US (occurrence: US)
  Receive Date: 20130201
  Receipt Date: 20130201
  Transmission Date: 20140127
  Serious: No
  Sender: FDA-Public Use
  Company Number: US-ABBOTT-12P-163-1027214-00

PATIENT
  Sex: Male

DRUGS (6)
  1. HUMIRA [Suspect]
     Indication: RHEUMATOID ARTHRITIS
     Dates: start: 201211
  2. METHOTREXATE [Concomitant]
     Indication: RHEUMATOID ARTHRITIS
  3. NAPROXEN [Concomitant]
     Indication: PAIN
  4. FIBERCON [Concomitant]
     Indication: CONSTIPATION
  5. UNKNOWN HEARTBURN MEDICATION [Concomitant]
     Indication: DYSPEPSIA
  6. ALLEGRA [Concomitant]
     Indication: SEASONAL ALLERGY

REACTIONS (1)
  - Injection site bruising [Recovered/Resolved]
